FAERS Safety Report 5206645-3 (Version None)
Quarter: 2007Q1

REPORT INFORMATION
  Report Type: 
  Country: None (occurrence: None)
  Receive Date: 20070109
  Receipt Date: 20061229
  Transmission Date: 20070707
  Serious: Yes (Hospitalization, Other)
  Sender: FDA-Public Use
  Company Number: 2006-03324

PATIENT
  Age: 68 Year
  Sex: Male
  Weight: 60 kg

DRUGS (2)
  1. VELCADE [Suspect]
     Indication: NON-SMALL CELL LUNG CANCER
     Dosage: 1.60 MG, INTRAVENOUS
     Route: 042
     Dates: start: 20060606, end: 20061212
  2. ALIMTA (PEMETREXED) VIAL, 500 MG [Suspect]
     Indication: NON-SMALL CELL LUNG CANCER
     Dosage: 660.00, INTRAVENOUS
     Route: 042
     Dates: start: 20060606, end: 20061205

REACTIONS (2)
  - BLOOD CREATININE INCREASED [None]
  - PULMONARY EMBOLISM [None]
